FAERS Safety Report 21959936 (Version 1)
Quarter: 2023Q1

REPORT INFORMATION
  Report Type: Spontaneous
  Country: US (occurrence: None)
  Receive Date: 20230204
  Receipt Date: 20230204
  Transmission Date: 20230418
  Serious: Yes (Hospitalization)
  Sender: FDA-Public Use
  Company Number: None

PATIENT
  Age: 61 Year
  Sex: Male
  Weight: 88.9 kg

DRUGS (2)
  1. CYTARABINE [Suspect]
     Active Substance: CYTARABINE
     Dates: end: 20220222
  2. DAUNORUBICIN [Suspect]
     Active Substance: DAUNORUBICIN
     Dates: end: 20211206

REACTIONS (12)
  - Pyrexia [None]
  - Chills [None]
  - Malaise [None]
  - Vomiting [None]
  - Haemoglobin decreased [None]
  - Infusion site erythema [None]
  - Blood sodium decreased [None]
  - Blood potassium decreased [None]
  - Procalcitonin abnormal [None]
  - White blood cell disorder [None]
  - Platelet disorder [None]
  - Neutropenia [None]

NARRATIVE: CASE EVENT DATE: 20220306
